FAERS Safety Report 10141618 (Version 1)
Quarter: 2014Q2

REPORT INFORMATION
  Report Type: Spontaneous
  Country: JP (occurrence: JP)
  Receive Date: 20140429
  Receipt Date: 20140429
  Transmission Date: 20141212
  Serious: Yes (Other)
  Sender: FDA-Public Use
  Company Number: JP-BRISTOL-MYERS SQUIBB COMPANY-20678330

PATIENT
  Sex: Male

DRUGS (5)
  1. METGLUCO [Suspect]
     Indication: DIABETES MELLITUS
     Route: 048
  2. AMLODIN [Suspect]
     Indication: HYPERTENSION
     Route: 048
  3. DIOVAN [Concomitant]
     Route: 048
  4. ACTOS [Concomitant]
     Route: 048
  5. RISPERDAL [Concomitant]

REACTIONS (1)
  - Blood pressure increased [Unknown]
